FAERS Safety Report 16439801 (Version 3)
Quarter: 2019Q3

REPORT INFORMATION
  Report Type: Spontaneous
  Country: US (occurrence: US)
  Receive Date: 20190617
  Receipt Date: 20190903
  Transmission Date: 20191004
  Serious: No
  Sender: FDA-Public Use
  Company Number: US-PFIZER INC-2019252095

PATIENT
  Age: 60 Year
  Sex: Female
  Weight: 70.31 kg

DRUGS (1)
  1. DEPO-MEDROL [Suspect]
     Active Substance: METHYLPREDNISOLONE ACETATE
     Indication: ARTHRITIS
     Dosage: 80 MG, SINGLE
     Route: 030
     Dates: start: 20190429

REACTIONS (11)
  - Insomnia [Recovered/Resolved]
  - Infection [Unknown]
  - Injection site indentation [Not Recovered/Not Resolved]
  - Injury [Unknown]
  - Neutrophil count increased [Unknown]
  - Headache [Unknown]
  - Malaise [Unknown]
  - Fatigue [Unknown]
  - Injection site pain [Recovered/Resolved]
  - White blood cell count increased [Unknown]
  - Condition aggravated [Recovered/Resolved]

NARRATIVE: CASE EVENT DATE: 20190429
